FAERS Safety Report 6129105-4 (Version None)
Quarter: 2009Q1

REPORT INFORMATION
  Report Type: 
  Country: None (occurrence: None)
  Receive Date: 20090324
  Receipt Date: 20090312
  Transmission Date: 20090719
  Serious: Yes (Hospitalization)
  Sender: FDA-Public Use
  Company Number: CA-JNJFOC-20090303710

PATIENT
  Sex: Female
  Weight: 108 kg

DRUGS (6)
  1. REMICADE [Suspect]
     Indication: DRUG USE FOR UNKNOWN INDICATION
     Route: 042
  2. VITAMIN D [Concomitant]
  3. FERROUS GLUCONATE [Concomitant]
  4. CALCIUM [Concomitant]
  5. PREDNISONE [Concomitant]
  6. LOPERAMIDE HCL [Concomitant]

REACTIONS (2)
  - POST PROCEDURAL HAEMORRHAGE [None]
  - PROCEDURAL SITE REACTION [None]
